FAERS Safety Report 9726951 (Version 1)
Quarter: 2013Q4

REPORT INFORMATION
  Report Type: Spontaneous
  Country: DE (occurrence: DE)
  Receive Date: 20131203
  Receipt Date: 20131203
  Transmission Date: 20140711
  Serious: Yes (Hospitalization)
  Sender: FDA-Public Use
  Company Number: DE-TEVA-447483GER

PATIENT
  Age: 69 Year
  Sex: Male

DRUGS (1)
  1. LISINOPRIL-TEVA 5 MG TABLETTEN [Suspect]
     Indication: HYPERTENSION
     Dosage: 2.5 MILLIGRAM DAILY; 1-0-0, 2.5 MG DAILY
     Route: 048
     Dates: start: 201303

REACTIONS (5)
  - Suffocation feeling [Recovered/Resolved]
  - Respiratory distress [Recovered/Resolved]
  - Pharyngeal oedema [Recovered/Resolved]
  - Fear of death [Recovered/Resolved]
  - Salivary hypersecretion [Recovered/Resolved]
